FAERS Safety Report 9034382 (Version 1)
Quarter: 2013Q1

REPORT INFORMATION
  Report Type: Spontaneous
  Country: US (occurrence: None)
  Receive Date: 20130116
  Receipt Date: 20130116
  Transmission Date: 20140127
  Serious: Yes (Hospitalization)
  Sender: FDA-Public Use
  Company Number: None

PATIENT
  Age: 66 Year
  Sex: Female
  Weight: 81.65 kg

DRUGS (1)
  1. METFORMIN 500MG UNKNOWN [Suspect]
     Indication: TYPE 2 DIABETES MELLITUS
     Dosage: 500MG  BID  PO
     Route: 048

REACTIONS (11)
  - Nausea [None]
  - Feeling jittery [None]
  - Asthenia [None]
  - Hypophagia [None]
  - Urine output decreased [None]
  - Blood lactic acid increased [None]
  - Blood creatinine increased [None]
  - Blood potassium increased [None]
  - Blood urea increased [None]
  - Dialysis [None]
  - Blood glucose increased [None]
